FAERS Safety Report 5393873-X (Version None)
Quarter: 2007Q3

REPORT INFORMATION
  Report Type: 
  Country: None (occurrence: None)
  Receive Date: 20070723
  Receipt Date: 20070713
  Transmission Date: 20080115
  Serious: Yes (Other)
  Sender: FDA-Public Use
  Company Number: B0479476A

PATIENT
  Age: 82 Year
  Sex: Female
  Weight: 64 kg

DRUGS (4)
  1. VALTREX [Suspect]
     Indication: HERPES ZOSTER
     Route: 048
     Dates: start: 20060306, end: 20070314
  2. CO-EPRIL [Suspect]
     Indication: ESSENTIAL HYPERTENSION
     Dosage: 20MG PER DAY
     Route: 048
     Dates: start: 20070306, end: 20070309
  3. SIMVASTATIN [Concomitant]
     Dosage: 20MG PER DAY
     Route: 048
     Dates: start: 20070306, end: 20070314
  4. FLAMON [Concomitant]
     Indication: ESSENTIAL HYPERTENSION
     Route: 048
     Dates: start: 20070306, end: 20070314

REACTIONS (2)
  - RENAL FAILURE [None]
  - VISUAL DISTURBANCE [None]
